FAERS Safety Report 7935701-1 (Version None)
Quarter: 2011Q4

REPORT INFORMATION
  Report Type: 
  Country: None (occurrence: None)
  Receive Date: 20111121
  Receipt Date: 20111114
  Transmission Date: 20120403
  Serious: No
  Sender: FDA-Public Use
  Company Number: 2011-01314

PATIENT
  Age: 55 Year
  Sex: Male
  Weight: 88.4514 kg

DRUGS (2)
  1. HYDROCHLOROTHIAZIDE [Concomitant]
  2. ZICAM COLD REMEDY NASAL GEL [Suspect]
     Indication: NASAL CONGESTION
     Dosage: ONE TIME USE
     Dates: start: 20111107, end: 20111107

REACTIONS (3)
  - AGEUSIA [None]
  - BURNING SENSATION [None]
  - EXPIRED DRUG ADMINISTERED [None]
